FAERS Safety Report 7405153-9 (Version None)
Quarter: 2011Q2

REPORT INFORMATION
  Report Type: 
  Country: None (occurrence: None)
  Receive Date: 20110411
  Receipt Date: 20110401
  Transmission Date: 20111010
  Serious: Yes (Hospitalization)
  Sender: FDA-Public Use
  Company Number: FR-BRISTOL-MYERS SQUIBB COMPANY-15650831

PATIENT
  Age: 87 Year
  Sex: Female

DRUGS (10)
  1. ZANIDIP [Concomitant]
  2. PLAVIX [Concomitant]
  3. EFFERALGAN [Concomitant]
  4. IMOVANE [Concomitant]
     Dates: start: 20101201
  5. ATHYMIL [Concomitant]
     Dates: start: 20101201
  6. TAHOR [Concomitant]
     Indication: DYSLIPIDAEMIA
  7. OGAST [Concomitant]
  8. APROVEL TABS [Suspect]
     Indication: HYPERTENSION
     Dates: start: 20060401, end: 20110126
  9. XANAX [Concomitant]
     Dates: start: 20101201
  10. FUROSEMIDE [Suspect]
     Indication: HYPERTENSION

REACTIONS (5)
  - SEPSIS [None]
  - RENAL FAILURE [None]
  - NEPHROLITHIASIS [None]
  - ORTHOSTATIC HYPOTENSION [None]
  - CHOLESTASIS [None]
